FAERS Safety Report 16228736 (Version 9)
Quarter: 2019Q3

REPORT INFORMATION
  Report Type: Report from Study
  Country: US (occurrence: US)
  Receive Date: 20190423
  Receipt Date: 20190918
  Transmission Date: 20191004
  Serious: Yes (Hospitalization)
  Sender: FDA-Public Use
  Company Number: US-REGENERON PHARMACEUTICALS, INC.-2019-13563

PATIENT

DRUGS (45)
  1. CEMIPLIMAB [Suspect]
     Active Substance: CEMIPLIMAB
     Indication: GLIOBLASTOMA
     Dosage: 350 MG,EVERY 3 WEEKS UNTIL DISEASE PROGRESSION
     Route: 042
     Dates: start: 20181219, end: 20181219
  2. MULTIVITAMIN                       /00097801/ [Concomitant]
     Active Substance: VITAMINS
     Indication: ROUTINE HEALTH MAINTENANCE
     Dosage: (1 IN 1 D)
     Route: 048
     Dates: start: 20190112
  3. LACOSAMIDE. [Concomitant]
     Active Substance: LACOSAMIDE
     Dosage: 150 MG (150 MG,1 IN 1 D)
     Route: 051
     Dates: start: 20190722, end: 20190726
  4. ONDANSETRON [Concomitant]
     Active Substance: ONDANSETRON
     Indication: PROPHYLAXIS OF NAUSEA AND VOMITING
     Dosage: 1 TABLET 30-60 MIN PRIOR TO TMZ ADMINISTRATION AND PRN (8 MG)
     Route: 048
     Dates: start: 20181227, end: 20190113
  5. MIDAZOLAM [Concomitant]
     Active Substance: MIDAZOLAM HYDROCHLORIDE
     Indication: SEIZURE PROPHYLAXIS
     Dosage: 5 MG/ML (AS REQUIRED)
     Route: 050
     Dates: start: 20181220
  6. INO-5401 [Suspect]
     Active Substance: INVESTIGATIONAL PRODUCT
     Indication: GLIOBLASTOMA
     Dosage: 9MG/1MG: EVERY 3 WEEKS TIMES 4 DOSE, THEN EVERY 9 WEEKS UNTIL DISEASE PROGRESSION
     Route: 030
     Dates: start: 20181219, end: 20181219
  7. INO-9012 [Suspect]
     Active Substance: INVESTIGATIONAL PRODUCT
     Dosage: 9MG/1MG: EVERY 3 WEEKS TIMES 4 DOSE, THEN EVERY 9 WEEKS UNTIL DISEASE PROGRESSION
     Route: 030
     Dates: start: 20190222, end: 20190222
  8. INO-9012 [Suspect]
     Active Substance: INVESTIGATIONAL PRODUCT
     Dosage: 9MG/1MG: EVERY 3 WEEKS TIMES 4 DOSE, THEN EVERY 9 WEEKS UNTIL DISEASE PROGRESSION
     Route: 030
     Dates: start: 20190627
  9. ACETAMINOPHEN. [Concomitant]
     Active Substance: ACETAMINOPHEN
     Indication: PYREXIA
     Dosage: 650 MG, AS NECESSARY
     Route: 048
     Dates: start: 20190103, end: 20190107
  10. CEMIPLIMAB [Suspect]
     Active Substance: CEMIPLIMAB
     Dosage: 350 MG,EVERY 3 WEEKS UNTIL DISEASE PROGRESSION
     Route: 042
     Dates: start: 20190627
  11. INO-5401 [Suspect]
     Active Substance: INVESTIGATIONAL PRODUCT
     Dosage: 9MG/1MG: EVERY 3 WEEKS TIMES 4 DOSE, THEN EVERY 9 WEEKS UNTIL DISEASE PROGRESSIONUNK
     Route: 030
     Dates: start: 20190222, end: 20190222
  12. INO-9012 [Suspect]
     Active Substance: INVESTIGATIONAL PRODUCT
     Indication: GLIOBLASTOMA
     Dosage: 9MG/1MG: EVERY 3 WEEKS TIMES 4 DOSE, THEN EVERY 9 WEEKS UNTIL DISEASE PROGRESSION
     Route: 030
     Dates: start: 20181219, end: 20181219
  13. INO-9012 [Suspect]
     Active Substance: INVESTIGATIONAL PRODUCT
     Dosage: 9MG/1MG: EVERY 3 WEEKS TIMES 4 DOSE, THEN EVERY 9 WEEKS UNTIL DISEASE PROGRESSION
     Route: 030
     Dates: start: 20190114, end: 20190114
  14. RADIOTHERAPY [Concomitant]
     Active Substance: RADIATION THERAPY
     Dosage: UNK
     Dates: start: 20190110, end: 20190118
  15. LEVETIRACETAM. [Concomitant]
     Active Substance: LEVETIRACETAM
     Dosage: 1000 MG (500 MG,2 IN 1 D)
     Route: 048
     Dates: start: 20190122, end: 20190128
  16. PANTOPRAZOLE [Concomitant]
     Active Substance: PANTOPRAZOLE
     Dosage: 40 MG (40 MG,1 IN 1 D)
     Route: 048
     Dates: start: 20190201, end: 20190429
  17. KEFLEX [Concomitant]
     Active Substance: CEPHALEXIN
     Indication: URINARY TRACT INFECTION
     Dosage: 1500 MG (500 MG,3 IN 1 D)
     Route: 048
     Dates: start: 20190103, end: 20190108
  18. INO-5401 [Suspect]
     Active Substance: INVESTIGATIONAL PRODUCT
     Dosage: 9MG/1MG: EVERY 3 WEEKS TIMES 4 DOSE, THEN EVERY 9 WEEKS UNTIL DISEASE PROGRESSION
     Route: 030
     Dates: start: 20190627
  19. LEVETIRACETAM. [Concomitant]
     Active Substance: LEVETIRACETAM
     Indication: SEIZURE PROPHYLAXIS
     Dosage: 2000 MG (1000 MG,2 IN 1 D)
     Route: 048
     Dates: start: 20181128, end: 20190114
  20. BACTRIM DS [Concomitant]
     Active Substance: SULFAMETHOXAZOLE\TRIMETHOPRIM
     Indication: ANTIFUNGAL PROPHYLAXIS
     Dosage: 800-160MG - 1 TABLET ON MONDAY, WEDNESDAY AND FRIDAY
     Route: 048
     Dates: start: 20181227, end: 20190109
  21. ATOVAQUONE. [Concomitant]
     Active Substance: ATOVAQUONE
     Indication: ANTIFUNGAL PROPHYLAXIS
     Dosage: 10 ML (10 ML,1 IN 1 D)
     Route: 048
     Dates: start: 20190114
  22. CEMIPLIMAB [Suspect]
     Active Substance: CEMIPLIMAB
     Dosage: 350 MG,EVERY 3 WEEKS UNTIL DISEASE PROGRESSION
     Route: 042
     Dates: start: 20190201, end: 20190201
  23. CEMIPLIMAB [Suspect]
     Active Substance: CEMIPLIMAB
     Dosage: 350 MG,EVERY 3 WEEKS UNTIL DISEASE PROGRESSION
     Route: 042
     Dates: start: 20190429, end: 20190429
  24. CEMIPLIMAB [Suspect]
     Active Substance: CEMIPLIMAB
     Dosage: 350 MG,EVERY 3 WEEKS UNTIL DISEASE PROGRESSION
     Route: 042
     Dates: start: 20190607, end: 20190607
  25. TEMOZOLOMIDE. [Concomitant]
     Active Substance: TEMOZOLOMIDE
     Indication: GLIOBLASTOMA
     Dosage: 75 MG/M2, DAILY AT BEDTIME, DOSE WAS HELD ON 8-JAN-2019 AND 14-JAN-2019
     Route: 048
     Dates: start: 20181227, end: 20190107
  26. TEMOZOLOMIDE. [Concomitant]
     Active Substance: TEMOZOLOMIDE
     Dosage: UNK
     Route: 048
     Dates: start: 20190115, end: 20190118
  27. RADIOTHERAPY [Concomitant]
     Active Substance: RADIATION THERAPY
     Indication: GLIOBLASTOMA
     Dosage: 40 GY IN 15 FRACTIONS - 2.67 GY PER DOSE, DOSE HELD ON 09-JAN-2019
     Dates: start: 20181227, end: 20190108
  28. LACOSAMIDE. [Concomitant]
     Active Substance: LACOSAMIDE
     Dosage: 200 MG (200 MG,1 IN 1 D)
     Route: 048
     Dates: start: 20190722, end: 20190726
  29. PANTOPRAZOLE [Concomitant]
     Active Substance: PANTOPRAZOLE
     Indication: GASTROINTESTINAL DISORDER PROPHYLAXIS
     Dosage: 40 MG (40 MG,1 IN 1 D)
     Route: 048
     Dates: start: 20181126, end: 20190109
  30. CEMIPLIMAB [Suspect]
     Active Substance: CEMIPLIMAB
     Dosage: 350 MG,EVERY 3 WEEKS UNTIL DISEASE PROGRESSION
     Route: 042
     Dates: start: 20190222, end: 20190222
  31. TEMOZOLOMIDE. [Concomitant]
     Active Substance: TEMOZOLOMIDE
     Dosage: 75 MG/M2, DAILY AT BEDTIME, DOSE WAS HELD ON 8-JAN-2019 AND 14-JAN-2019
     Route: 048
     Dates: start: 20190109, end: 20190113
  32. FAMOTIDINE. [Concomitant]
     Active Substance: FAMOTIDINE
     Indication: GASTROINTESTINAL DISORDER PROPHYLAXIS
     Dosage: 40 MG (20 MG,2 IN 1 D)
     Route: 048
     Dates: start: 20190110, end: 20190131
  33. CEMIPLIMAB [Suspect]
     Active Substance: CEMIPLIMAB
     Dosage: 350 MG,EVERY 3 WEEKS UNTIL DISEASE PROGRESSION
     Route: 042
     Dates: start: 20190517, end: 20190517
  34. INO-5401 [Suspect]
     Active Substance: INVESTIGATIONAL PRODUCT
     Dosage: 9MG/1MG: EVERY 3 WEEKS TIMES 4 DOSE, THEN EVERY 9 WEEKS UNTIL DISEASE PROGRESSION
     Route: 030
     Dates: start: 20190426, end: 20190426
  35. LEVETIRACETAM. [Concomitant]
     Active Substance: LEVETIRACETAM
     Dosage: 1000MG IN AM AND 500MG IN PM
     Route: 048
     Dates: start: 20190115, end: 20190121
  36. LEVETIRACETAM. [Concomitant]
     Active Substance: LEVETIRACETAM
     Dosage: 1500 MG (750 MG,2 IN 1 D)
     Route: 048
     Dates: start: 20190807
  37. INO-5401 [Suspect]
     Active Substance: INVESTIGATIONAL PRODUCT
     Dosage: 9MG/1MG: EVERY 3 WEEKS TIMES 4 DOSE, THEN EVERY 9 WEEKS UNTIL DISEASE PROGRESSION
     Route: 030
     Dates: start: 20190114, end: 20190114
  38. INO-5401 [Suspect]
     Active Substance: INVESTIGATIONAL PRODUCT
     Dosage: 9MG/1MG: EVERY 3 WEEKS TIMES 4 DOSE, THEN EVERY 9 WEEKS UNTIL DISEASE PROGRESSION
     Route: 030
     Dates: start: 20190201, end: 20190201
  39. INO-9012 [Suspect]
     Active Substance: INVESTIGATIONAL PRODUCT
     Dosage: 9MG/1MG: EVERY 3 WEEKS TIMES 4 DOSE, THEN EVERY 9 WEEKS UNTIL DISEASE PROGRESSION
     Route: 030
     Dates: start: 20190201, end: 20190201
  40. INO-9012 [Suspect]
     Active Substance: INVESTIGATIONAL PRODUCT
     Dosage: 9MG/1MG: EVERY 3 WEEKS TIMES 4 DOSE, THEN EVERY 9 WEEKS UNTIL DISEASE PROGRESSION
     Route: 030
     Dates: start: 20190426, end: 20190426
  41. LACOSAMIDE. [Concomitant]
     Active Substance: LACOSAMIDE
     Indication: SEIZURE PROPHYLAXIS
     Dosage: 400 MG (200 MG,2 IN 1 D)
     Route: 048
     Dates: start: 20181128
  42. LACOSAMIDE. [Concomitant]
     Active Substance: LACOSAMIDE
     Dosage: 200 MG (200 MG,1 IN 1 D)????
     Route: 048
     Dates: start: 20190727
  43. LEVETIRACETAM. [Concomitant]
     Active Substance: LEVETIRACETAM
     Dosage: 500 MG (250 MG,2 IN 1 D)
     Route: 048
     Dates: start: 20190129, end: 20190804
  44. IBUPROFEN. [Concomitant]
     Active Substance: IBUPROFEN
     Indication: PYREXIA
     Dosage: 600 MG, AS NECESSARY
     Route: 048
     Dates: start: 20190103, end: 20190107
  45. FAMOTIDINE. [Concomitant]
     Active Substance: FAMOTIDINE
     Dosage: 40 MG (20 MG,2 IN 1 D)
     Route: 048
     Dates: start: 20190430, end: 20190607

REACTIONS (6)
  - Immune-mediated hepatitis [Recovered/Resolved]
  - Autoimmune nephritis [Recovered/Resolved]
  - Pyrexia [Recovered/Resolved]
  - Autoimmune nephritis [Recovered/Resolved]
  - Immune-mediated hepatitis [Recovered/Resolved]
  - Autoimmune nephritis [Recovered/Resolved]

NARRATIVE: CASE EVENT DATE: 20190108
